FAERS Safety Report 7155947-2 (Version None)
Quarter: 2011Q1

REPORT INFORMATION
  Report Type: 
  Country: None (occurrence: None)
  Receive Date: 20101214
  Receipt Date: 20100805
  Transmission Date: 20110831
  Serious: No
  Sender: FDA-Public Use
  Company Number: US-MYLANLABS-2010S1013205

PATIENT
  Age: 29 Year
  Sex: Female

DRUGS (6)
  1. FLUVOXAMINE MALEATE [Suspect]
     Route: 048
  2. LEVORA 0.15/30-21 [Concomitant]
  3. FLUVOXAMINE MALEATE [Suspect]
     Indication: OBSESSIVE-COMPULSIVE DISORDER
     Route: 048
     Dates: start: 20080101, end: 20100718
  4. FLUVOXAMINE MALEATE [Suspect]
     Indication: DEPRESSION
     Route: 048
     Dates: start: 20080101, end: 20100718
  5. FLUVOXAMINE MALEATE [Suspect]
     Route: 048
  6. IBUPROFEN [Concomitant]

REACTIONS (4)
  - OBSESSIVE-COMPULSIVE DISORDER [None]
  - FEELING JITTERY [None]
  - PANIC ATTACK [None]
  - DRUG INEFFECTIVE [None]
